FAERS Safety Report 16034155 (Version 1)
Quarter: 2019Q1

REPORT INFORMATION
  Report Type: Spontaneous
  Country: US (occurrence: US)
  Receive Date: 20190205
  Receipt Date: 20190205
  Transmission Date: 20190418
  Serious: No
  Sender: FDA-Public Use
  Company Number: None

PATIENT
  Age: 71 Year
  Sex: Female
  Weight: 55.79 kg

DRUGS (2)
  1. AMITIZA [Suspect]
     Active Substance: LUBIPROSTONE
     Indication: ABDOMINAL ADHESIONS
     Route: 048
     Dates: start: 201808, end: 201901
  2. AMITIZA [Suspect]
     Active Substance: LUBIPROSTONE
     Indication: PERITONITIS
     Route: 048
     Dates: start: 201808, end: 201901

REACTIONS (4)
  - Pain in extremity [None]
  - Tendon pain [None]
  - Respiration abnormal [None]
  - Cough [None]

NARRATIVE: CASE EVENT DATE: 20190120
